FAERS Safety Report 8200352-0 (Version None)
Quarter: 2012Q1

REPORT INFORMATION
  Report Type: 
  Country: None (occurrence: None)
  Receive Date: 20120312
  Receipt Date: 20120303
  Transmission Date: 20120608
  Serious: Yes (Disabling, Other)
  Sender: FDA-Public Use
  Company Number: AT-US-EMD SERONO, INC.-7115422

PATIENT
  Age: 30 Year
  Sex: Female

DRUGS (3)
  1. TRAZODONE HCL [Concomitant]
     Indication: DEPRESSION
  2. CITALOPRAM HYDROBROMIDE [Concomitant]
     Indication: DEPRESSION
  3. REBIF [Suspect]
     Indication: MULTIPLE SCLEROSIS
     Dates: start: 20020101, end: 20120222

REACTIONS (1)
  - MACULOPATHY [None]
